FAERS Safety Report 8576251-1 (Version None)
Quarter: 2012Q2

REPORT INFORMATION
  Report Type: 
  Country: None (occurrence: None)
  Receive Date: 20120423
  Receipt Date: 20091103
  Transmission Date: 20120825
  Serious: Yes (Other)
  Sender: FDA-Public Use
  Company Number: PHEH2009US12394

PATIENT
  Age: 81 Year
  Sex: Male
  Weight: 97 kg

DRUGS (6)
  1. EXJADE [Suspect]
     Dosage: 750 MG, QD, ORAL
     Route: 048
     Dates: start: 20090807, end: 20090903
  2. METOPROLOL TARTRATE [Concomitant]
  3. OMEPRAZOLE [Concomitant]
  4. ASPIRIN [Concomitant]
  5. LASIX [Suspect]
     Dosage: 40 MG, QD
  6. ACETAMINOPHEN [Concomitant]

REACTIONS (2)
  - DRUG INTOLERANCE [None]
  - BLOOD CREATININE INCREASED [None]
